FAERS Safety Report 5448315-2 (Version None)
Quarter: 2007Q3

REPORT INFORMATION
  Report Type: 
  Country: None (occurrence: None)
  Receive Date: 20070906
  Receipt Date: 20070906
  Transmission Date: 20080115
  Serious: Yes (Life-Threatening)
  Sender: FDA-Public Use
  Company Number: None

PATIENT
  Sex: Female
  Weight: 54.4316 kg

DRUGS (2)
  1. PREVACID [Suspect]
     Indication: BARRETT'S OESOPHAGUS
     Dosage: 1-30 MG TABLET DAILY IN AM PO
     Route: 048
     Dates: start: 20051201, end: 20070415
  2. FAMOTIDINE 40 MG WOCKHARDT USA [Suspect]
     Indication: BARRETT'S OESOPHAGUS
     Dosage: 1-40 MG DAILY IN PM PO
     Route: 048
     Dates: start: 20051201, end: 20070404

REACTIONS (7)
  - ANAEMIA [None]
  - DYSPNOEA [None]
  - JOINT SWELLING [None]
  - ORAL PAIN [None]
  - PALLOR [None]
  - PALPITATIONS [None]
  - WEIGHT DECREASED [None]
